FAERS Safety Report 11473737 (Version 1)
Quarter: 2015Q3

REPORT INFORMATION
  Report Type: Spontaneous
  Country: US (occurrence: None)
  Receive Date: 20150908
  Receipt Date: 20150908
  Transmission Date: 20151125
  Serious: Yes (Other)
  Sender: FDA-Public Use
  Company Number: None

PATIENT
  Age: 50 Year
  Sex: Female
  Weight: 60.78 kg

DRUGS (7)
  1. ARMOUR THYROID [Concomitant]
     Active Substance: THYROID, PORCINE\THYROID, UNSPECIFIED
  2. ZYRTEC [Concomitant]
     Active Substance: CETIRIZINE HYDROCHLORIDE
  3. CONTRAVE [Suspect]
     Active Substance: BUPROPION HYDROCHLORIDE\NALTREXONE HYDROCHLORIDE
     Indication: WEIGHT CONTROL
     Dosage: 2 PILLS
     Route: 048
     Dates: start: 20150529, end: 20150825
  4. VITAMIN D [Concomitant]
     Active Substance: CHOLECALCIFEROL
  5. NASACORT [Concomitant]
     Active Substance: TRIAMCINOLONE ACETONIDE
  6. ACYCLOVIR. [Concomitant]
     Active Substance: ACYCLOVIR
  7. VITAMIN B12 [Concomitant]
     Active Substance: CYANOCOBALAMIN

REACTIONS (12)
  - Chest pain [None]
  - Dizziness [None]
  - Nausea [None]
  - Communication disorder [None]
  - Incorrect dose administered [None]
  - Headache [None]
  - Platelet count decreased [None]
  - Thyroid function test abnormal [None]
  - Condition aggravated [None]
  - Reading disorder [None]
  - Antinuclear antibody positive [None]
  - White blood cell count decreased [None]

NARRATIVE: CASE EVENT DATE: 20150707
